FAERS Safety Report 24814188 (Version 2)
Quarter: 2025Q1

REPORT INFORMATION
  Report Type: Spontaneous
  Country: JP (occurrence: JP)
  Receive Date: 20250107
  Receipt Date: 20250127
  Transmission Date: 20250408
  Serious: Yes (Hospitalization)
  Sender: MYLAN
  Company Number: JP-VIATRISJAPAN-2024M1116588AA

PATIENT

DRUGS (1)
  1. SERTRALINE [Suspect]
     Active Substance: SERTRALINE HYDROCHLORIDE
     Indication: Depression
     Route: 064

REACTIONS (3)
  - Respiratory distress [Recovering/Resolving]
  - Cyanosis [Recovering/Resolving]
  - Foetal exposure during pregnancy [Unknown]
